FAERS Safety Report 5777030-0 (Version None)
Quarter: 2008Q2

REPORT INFORMATION
  Report Type: 
  Country: None (occurrence: None)
  Receive Date: 20080618
  Receipt Date: 20080428
  Transmission Date: 20081010
  Serious: No
  Sender: FDA-Public Use
  Company Number: US-ASTRAZENECA-2008UW07022

PATIENT
  Age: 45 Year
  Sex: Female
  Weight: 55.3 kg

DRUGS (5)
  1. SYMBICORT [Suspect]
     Indication: RESPIRATORY TRACT INFECTION BACTERIAL
     Dosage: 160/4.5 UG - 1 PUFF BID
     Route: 055
     Dates: start: 20080301, end: 20080402
  2. CIPROFLOXACIN [Concomitant]
  3. FLAGYL [Concomitant]
  4. HOMEOPATHIC [Concomitant]
  5. ADVAIR DISKUS 100/50 [Concomitant]

REACTIONS (4)
  - BODY TEMPERATURE FLUCTUATION [None]
  - CHEST PAIN [None]
  - DYSGEUSIA [None]
  - DYSPNOEA [None]
